FAERS Safety Report 15509660 (Version 1)
Quarter: 2018Q4

REPORT INFORMATION
  Report Type: Spontaneous
  Country: US (occurrence: US)
  Receive Date: 20181010
  Receipt Date: 20181010
  Transmission Date: 20190205
  Serious: Yes (Hospitalization)
  Sender: FDA-Public Use
  Company Number: None

PATIENT
  Age: 62 Year
  Sex: Female

DRUGS (1)
  1. NUCALA [Suspect]
     Active Substance: MEPOLIZUMAB
     Indication: ASTHMA
     Dosage: ?          OTHER STRENGTH:100MG/VL;OTHER FREQUENCY:EVERY 4 WEEKS;?
     Route: 058
     Dates: start: 20171109

REACTIONS (1)
  - Gastric cancer [None]

NARRATIVE: CASE EVENT DATE: 20180901
